FAERS Safety Report 8090354-X (Version None)
Quarter: 2012Q1

REPORT INFORMATION
  Report Type: 
  Country: None (occurrence: None)
  Receive Date: 20120129
  Receipt Date: 20111129
  Transmission Date: 20120608
  Serious: No
  Sender: FDA-Public Use
  Company Number: US-ABBOTT-11P-163-0879417-00

PATIENT
  Age: 44 Year
  Sex: Female

DRUGS (7)
  1. HUMIRA [Suspect]
     Indication: CROHN'S DISEASE
     Route: 058
     Dates: start: 20111109
  2. CYMBALTA [Concomitant]
     Indication: FIBROMYALGIA
  3. NEXIUM [Concomitant]
     Indication: GASTROOESOPHAGEAL REFLUX DISEASE
  4. PENTASA [Concomitant]
     Indication: CROHN'S DISEASE
  5. ABILIFY [Concomitant]
     Indication: FIBROMYALGIA
  6. PROBIOTIC [Concomitant]
     Indication: PRODUCT USED FOR UNKNOWN INDICATION
  7. CIPROFLOXACIN [Concomitant]
     Indication: ABSCESS INTESTINAL
     Dates: start: 20110901

REACTIONS (3)
  - VOMITING [None]
  - NAUSEA [None]
  - DECREASED APPETITE [None]
